FAERS Safety Report 16246069 (Version 4)
Quarter: 2019Q4

REPORT INFORMATION
  Report Type: Report from Study
  Country: US (occurrence: US)
  Receive Date: 20190426
  Receipt Date: 20191231
  Transmission Date: 20200122
  Serious: Yes (Death, Other)
  Sender: FDA-Public Use
  Company Number: US-ACTELION-A-US2019-189457

PATIENT
  Age: 94 Year
  Sex: Male
  Weight: 59.41 kg

DRUGS (24)
  1. TRACLEER [Suspect]
     Active Substance: BOSENTAN
     Indication: PULMONARY ARTERIAL HYPERTENSION
     Dosage: 125 MG, BID
     Route: 048
     Dates: start: 20120107, end: 20191207
  2. LEVOTHYROXINE. [Concomitant]
     Active Substance: LEVOTHYROXINE
     Dosage: 75 MG
     Dates: start: 20180205
  3. LEVOTHYROXINE. [Concomitant]
     Active Substance: LEVOTHYROXINE
     Dosage: 88 MCG, QD
     Route: 048
     Dates: start: 20181220
  4. JANUVIA [Concomitant]
     Active Substance: SITAGLIPTIN PHOSPHATE
     Dosage: 100 MG
     Dates: start: 20180205
  5. JANUVIA [Concomitant]
     Active Substance: SITAGLIPTIN PHOSPHATE
     Dosage: 50 MG, QD
     Route: 048
  6. ZANTAC [Concomitant]
     Active Substance: RANITIDINE HYDROCHLORIDE
     Dosage: 150 MG
     Dates: start: 20190227
  7. RANITIDINE. [Concomitant]
     Active Substance: RANITIDINE
     Dosage: 150 MG
     Dates: start: 20190829
  8. GABAPENTIN. [Concomitant]
     Active Substance: GABAPENTIN
     Dosage: 300 MG, QD
     Route: 048
  9. SERTRALINE [Concomitant]
     Active Substance: SERTRALINE HYDROCHLORIDE
     Dosage: 25 MG
     Dates: start: 20190211
  10. ASPIRIN. [Concomitant]
     Active Substance: ASPIRIN
     Dosage: 81 MG, QD
     Route: 048
  11. NORCO [Concomitant]
     Active Substance: ACETAMINOPHEN\HYDROCODONE BITARTRATE
     Dosage: 5-325 MG, 1 TABLET QD
     Route: 048
  12. DONEPEZIL. [Concomitant]
     Active Substance: DONEPEZIL
     Dosage: 5 MG
     Dates: start: 20190918
  13. SUCRALFATE. [Concomitant]
     Active Substance: SUCRALFATE
  14. LISINOPRIL. [Concomitant]
     Active Substance: LISINOPRIL
     Dosage: 4 MG, QD
     Dates: start: 20181026
  15. OMEPRAZOLE. [Concomitant]
     Active Substance: OMEPRAZOLE
     Dosage: 20 MG
     Dates: start: 20190227
  16. LASIX [Concomitant]
     Active Substance: FUROSEMIDE
     Dosage: 40 MG, QD (M,W,F)
     Route: 048
  17. CARAFATE [Concomitant]
     Active Substance: SUCRALFATE
     Dosage: 1 MG
     Dates: start: 20190205
  18. ELIQUIS [Concomitant]
     Active Substance: APIXABAN
     Dosage: 2.5 MG
     Dates: start: 20180205
  19. LASIX [Concomitant]
     Active Substance: FUROSEMIDE
     Dosage: 20 MG
     Dates: start: 20180227
  20. OXYGEN. [Concomitant]
     Active Substance: OXYGEN
     Dosage: AT NIGHT
  21. METFORMIN [Concomitant]
     Active Substance: METFORMIN HYDROCHLORIDE
     Dosage: 500 MG
     Dates: start: 20190910
  22. LISINOPRIL. [Concomitant]
     Active Substance: LISINOPRIL
     Dosage: 20 UNK
     Dates: start: 20191018
  23. SERTRALINE [Concomitant]
     Active Substance: SERTRALINE HYDROCHLORIDE
     Dosage: 50 MG
     Dates: start: 20190227
  24. HYDROCODONE BITARTRATE AND ACETAMINOPHEN [Concomitant]
     Active Substance: ACETAMINOPHEN\HYDROCODONE BITARTRATE
     Dosage: 5-325 MG
     Dates: start: 20191111

REACTIONS (15)
  - General physical health deterioration [Unknown]
  - Nausea [Unknown]
  - Pulmonary function test abnormal [Unknown]
  - Diaphragmatic paralysis [Unknown]
  - Hypertension [Not Recovered/Not Resolved]
  - Oesophageal motility disorder [Unknown]
  - Prostate cancer [Unknown]
  - Renal failure [Unknown]
  - Death [Fatal]
  - Deafness neurosensory [Unknown]
  - Gastritis [Unknown]
  - Product dose omission [Unknown]
  - Dehydration [Recovered/Resolved]
  - Acute kidney injury [Recovered/Resolved]
  - Memory impairment [Unknown]

NARRATIVE: CASE EVENT DATE: 20191207
